FAERS Safety Report 5405755-5 (Version None)
Quarter: 2007Q3

REPORT INFORMATION
  Report Type: 
  Country: None (occurrence: None)
  Receive Date: 20070806
  Receipt Date: 20070726
  Transmission Date: 20080115
  Serious: Yes (Hospitalization)
  Sender: FDA-Public Use
  Company Number: US-JNJFOC-20070706525

PATIENT
  Sex: Female
  Weight: 95.71 kg

DRUGS (5)
  1. FENTANYL [Suspect]
     Dosage: 4 X 100 UG/HR
     Route: 065
  2. FENTANYL [Suspect]
     Indication: PAIN
     Dosage: 2 X 100UG/HR
     Route: 065
  3. FENTANYL TRANSDERMAL SYSTEM [Suspect]
     Indication: PAIN
     Dosage: 2 X 100  1 X 50  1 X 25
     Route: 062
  4. DARVON [Concomitant]
     Indication: PAIN
     Dosage: UP TO 6 TABLETS PER DAY AS NEEDED
     Route: 048
  5. UNSPECIFIED SLEEP MEDICATION [Concomitant]
     Indication: PAIN
     Dosage: MG
     Route: 065

REACTIONS (9)
  - ARTHRALGIA [None]
  - CEREBRAL HAEMORRHAGE [None]
  - DRUG ADMINISTERED AT INAPPROPRIATE SITE [None]
  - FALL [None]
  - HIP FRACTURE [None]
  - NEPHRECTOMY [None]
  - PANCREATITIS [None]
  - ROAD TRAFFIC ACCIDENT [None]
  - WRONG TECHNIQUE IN DRUG USAGE PROCESS [None]
